FAERS Safety Report 6164376-X (Version None)
Quarter: 2009Q2

REPORT INFORMATION
  Report Type: 
  Country: None (occurrence: None)
  Receive Date: 20090422
  Receipt Date: 20090413
  Transmission Date: 20091009
  Serious: Yes (Other)
  Sender: FDA-Public Use
  Company Number: US-AMGEN-US342709

PATIENT
  Sex: Male

DRUGS (3)
  1. NPLATE [Suspect]
     Indication: GRAFT VERSUS HOST DISEASE
     Route: 065
     Dates: start: 20090409
  2. CORTICOSTEROIDS [Concomitant]
     Route: 065
  3. IMMUNOGLOBULINS [Concomitant]
     Route: 042

REACTIONS (1)
  - SCLERODERMA [None]
